FAERS Safety Report 7730731-7 (Version None)
Quarter: 2011Q3

REPORT INFORMATION
  Report Type: 
  Country: None (occurrence: None)
  Receive Date: 20110906
  Receipt Date: 20110708
  Transmission Date: 20111222
  Serious: Yes (Hospitalization, Disabling)
  Sender: FDA-Public Use
  Company Number: JP-GLAXOSMITHKLINE-B0732239A

PATIENT
  Sex: Female

DRUGS (7)
  1. PROGRAF [Concomitant]
  2. ALKERAN [Concomitant]
  3. POLYGAM S/D [Concomitant]
  4. ZOVIRAX [Suspect]
     Indication: PROPHYLAXIS
     Route: 042
     Dates: start: 20110316
  5. PREDNISOLONE [Concomitant]
  6. LYRICA [Concomitant]
  7. SOLU-MEDROL [Concomitant]

REACTIONS (14)
  - ENCEPHALOPATHY [None]
  - QUADRIPLEGIA [None]
  - HAEMATURIA [None]
  - GRAFT VERSUS HOST DISEASE [None]
  - ABULIA [None]
  - RENAL IMPAIRMENT [None]
  - PAIN [None]
  - MUSCULAR WEAKNESS [None]
  - DEHYDRATION [None]
  - BLOOD CREATININE INCREASED [None]
  - HERPES ZOSTER [None]
  - PANCREATITIS ACUTE [None]
  - BLINDNESS CORTICAL [None]
  - MYOSITIS [None]
